FAERS Safety Report 8488704-5 (Version None)
Quarter: 2012Q2

REPORT INFORMATION
  Report Type: 
  Country: None (occurrence: None)
  Receive Date: 20120626
  Receipt Date: 20120621
  Transmission Date: 20120825
  Serious: Yes (Hospitalization)
  Sender: FDA-Public Use
  Company Number: SP05772

PATIENT
  Age: 52 Year
  Sex: Male

DRUGS (1)
  1. XIFAXAN [Suspect]
     Indication: HEPATIC ENCEPHALOPATHY
     Dosage: (200 MG), ORAL
     Route: 048

REACTIONS (6)
  - PROSTATITIS [None]
  - INFECTIOUS PERITONITIS [None]
  - ENTEROCOCCAL INFECTION [None]
  - STAPHYLOCOCCAL INFECTION [None]
  - ALTERED STATE OF CONSCIOUSNESS [None]
  - RENAL FAILURE [None]
